FAERS Safety Report 4567944-1 (Version None)
Quarter: 2005Q1

REPORT INFORMATION
  Report Type: 
  Country: None (occurrence: None)
  Receive Date: 20050202
  Receipt Date: 20040729
  Transmission Date: 20050727
  Serious: No
  Sender: FDA-Public Use
  Company Number: US-GLAXOSMITHKLINE-A0520291A

PATIENT
  Age: 54 Year
  Sex: Female

DRUGS (3)
  1. NAVELBINE [Suspect]
     Route: 042
  2. PROCRIT [Concomitant]
  3. ANTIBIOTIC [Concomitant]

REACTIONS (6)
  - CHEST DISCOMFORT [None]
  - CYSTITIS [None]
  - FATIGUE [None]
  - HYPERHIDROSIS [None]
  - PAIN IN JAW [None]
  - PALPITATIONS [None]
